FAERS Safety Report 18329971 (Version 9)
Quarter: 2021Q1

REPORT INFORMATION
  Report Type: Spontaneous
  Country: US (occurrence: US)
  Receive Date: 20200930
  Receipt Date: 20210108
  Transmission Date: 20210419
  Serious: Yes (Other)
  Sender: FDA-Public Use
  Company Number: US-SA-2020SA265201

PATIENT

DRUGS (46)
  1. SENNA PLUS [SENNA ALEXANDRINA] [Concomitant]
  2. ABILIFY [Concomitant]
     Active Substance: ARIPIPRAZOLE
  3. PROGESTERONE. [Concomitant]
     Active Substance: PROGESTERONE
  4. AMITRIPTYLINE HCL [Concomitant]
     Active Substance: AMITRIPTYLINE
     Dosage: UNK
     Route: 065
  5. FISH OIL [Concomitant]
     Active Substance: FISH OIL
  6. VITAMIN D3 [Concomitant]
     Active Substance: CHOLECALCIFEROL
  7. MUCINEX [Concomitant]
     Active Substance: GUAIFENESIN
     Dosage: UNK, Q12H
  8. AMITIZA [Concomitant]
     Active Substance: LUBIPROSTONE
     Route: 065
  9. OMEPRAZOLE. [Concomitant]
     Active Substance: OMEPRAZOLE
  10. PROBIOTIC 10 [Concomitant]
     Active Substance: DIETARY SUPPLEMENT\PROBIOTICS
  11. QVAR [Concomitant]
     Active Substance: BECLOMETHASONE DIPROPIONATE
  12. CLARITIN?D NOS [Concomitant]
     Active Substance: LORATADINE\PSEUDOEPHEDRINE SULFATE
     Route: 065
  13. VITAMIN B COMPLEX [Concomitant]
     Active Substance: CYANOCOBALAMIN\DEXPANTHENOL\NIACINAMIDE\PYRIDOXINE HYDROCHLORIDE\RIBOFLAVIN 5^-PHOSPHATE SODIUM\THIAMINE HYDROCHLORIDE\VITAMIN B COMPLEX
  14. PRESERVISION AREDS [Concomitant]
     Active Substance: MINERALS\VITAMINS
  15. SENNA LAXATIVE [Concomitant]
     Active Substance: SENNOSIDES
     Route: 065
  16. NASAFLO NETI POT [SODIUM BICARBONATE] [Concomitant]
     Route: 065
  17. LEXAPRO [Concomitant]
     Active Substance: ESCITALOPRAM OXALATE
  18. OFEV [Concomitant]
     Active Substance: NINTEDANIB
  19. TYLENOL [Concomitant]
     Active Substance: ACETAMINOPHEN
     Dosage: UNK
     Route: 065
  20. MISOPROSTOL. [Concomitant]
     Active Substance: MISOPROSTOL
     Route: 065
  21. CHLORASEPTIC SORE THROAT [Concomitant]
     Active Substance: PHENOL
  22. ESTRADIOL. [Concomitant]
     Active Substance: ESTRADIOL
  23. SYNTHROID [Concomitant]
     Active Substance: LEVOTHYROXINE SODIUM
  24. DUPIXENT [Suspect]
     Active Substance: DUPILUMAB
     Indication: ASTHMA
  25. VITAMIN C [Concomitant]
     Active Substance: ASCORBIC ACID
  26. ZINC. [Concomitant]
     Active Substance: ZINC
  27. TRAMADOL HYDROCHLORIDE. [Concomitant]
     Active Substance: TRAMADOL HYDROCHLORIDE
     Route: 065
  28. DULCOLAX STOOL SOFTENER [Concomitant]
     Active Substance: DOCUSATE SODIUM
  29. ALBUTEROL SULFATE. [Concomitant]
     Active Substance: ALBUTEROL SULFATE
  30. DILAUDID [Concomitant]
     Active Substance: HYDROMORPHONE HYDROCHLORIDE
  31. OXYGEN. [Concomitant]
     Active Substance: OXYGEN
  32. DUPIXENT [Suspect]
     Active Substance: DUPILUMAB
     Indication: DERMATITIS ATOPIC
     Dosage: 300 MG, QOW
     Route: 058
     Dates: start: 20200821
  33. MAGNESIUM [Concomitant]
     Active Substance: MAGNESIUM
  34. LACTULOSE. [Concomitant]
     Active Substance: LACTULOSE
     Dosage: UNK
     Route: 065
  35. MAGNESIUM OXIDE. [Concomitant]
     Active Substance: MAGNESIUM OXIDE
     Route: 065
  36. COCONUT OIL [Concomitant]
     Active Substance: COCONUT OIL
     Route: 065
  37. MELOXICAM. [Concomitant]
     Active Substance: MELOXICAM
     Route: 065
  38. CORTIZONE 10 [Concomitant]
     Active Substance: HYDROCORTISONE
  39. CLONAZEPAM. [Concomitant]
     Active Substance: CLONAZEPAM
  40. EFFEXOR XR [Concomitant]
     Active Substance: VENLAFAXINE HYDROCHLORIDE
  41. LOPERAMIDE [Concomitant]
     Active Substance: LOPERAMIDE
  42. LASIX [Concomitant]
     Active Substance: FUROSEMIDE
     Dosage: UNK
     Route: 065
  43. PREDNISONE. [Concomitant]
     Active Substance: PREDNISONE
     Route: 065
  44. FOLIC ACID. [Concomitant]
     Active Substance: FOLIC ACID
     Route: 065
  45. ZOFRAN [Concomitant]
     Active Substance: ONDANSETRON HYDROCHLORIDE
     Route: 065
  46. SINGULAIR [Concomitant]
     Active Substance: MONTELUKAST SODIUM

REACTIONS (24)
  - Gait disturbance [Not Recovered/Not Resolved]
  - Nausea [Unknown]
  - Suicidal ideation [Unknown]
  - Pruritus [Unknown]
  - Cough [Not Recovered/Not Resolved]
  - Decreased appetite [Unknown]
  - Neck pain [Recovering/Resolving]
  - Contusion [Unknown]
  - Pain [Unknown]
  - Speech disorder [Not Recovered/Not Resolved]
  - Skin infection [Unknown]
  - Fall [Unknown]
  - Injection site erythema [Recovering/Resolving]
  - Thought blocking [Not Recovered/Not Resolved]
  - Rash [Unknown]
  - Bronchitis [Not Recovered/Not Resolved]
  - Fatigue [Unknown]
  - Sinus congestion [Unknown]
  - Fear of death [Not Recovered/Not Resolved]
  - Hypersomnia [Not Recovered/Not Resolved]
  - Insomnia [Unknown]
  - Pain [Unknown]
  - Therapeutic response shortened [Unknown]
  - Dyspnoea [Not Recovered/Not Resolved]

NARRATIVE: CASE EVENT DATE: 2020
